FAERS Safety Report 8435424-9 (Version None)
Quarter: 2012Q2

REPORT INFORMATION
  Report Type: 
  Country: None (occurrence: None)
  Receive Date: 20120614
  Receipt Date: 20120605
  Transmission Date: 20120825
  Serious: Yes (Other)
  Sender: FDA-Public Use
  Company Number: US-BRISTOL-MYERS SQUIBB COMPANY-16662710

PATIENT
  Age: 52 Year
  Sex: Female

DRUGS (1)
  1. ERBITUX [Suspect]
     Dosage: ALSO TAKEN 300MG
     Dates: start: 20120207

REACTIONS (2)
  - LIVER DISORDER [None]
  - HAIR GROWTH ABNORMAL [None]
